FAERS Safety Report 10161426 (Version 2)
Quarter: 2014Q2

REPORT INFORMATION
  Report Type: Spontaneous
  Country: US (occurrence: US)
  Receive Date: 20140509
  Receipt Date: 20140509
  Transmission Date: 20141212
  Serious: Yes (Other)
  Sender: FDA-Public Use
  Company Number: US-BEH-2013035706

PATIENT
  Age: 34 Year
  Sex: Male
  Weight: 65 kg

DRUGS (4)
  1. PRIVIGEN [Suspect]
     Dosage: 20 GM (10%)
     Route: 042
     Dates: start: 20130401
  2. PRIVIGEN [Suspect]
     Dosage: 5 GM
     Route: 042
     Dates: start: 20130401
  3. PRIVIGEN [Suspect]
     Indication: METAPNEUMOVIRUS INFECTION
     Dosage: 15 GM (10%)
     Route: 042
     Dates: start: 20130401
  4. BLOOD TRANSFUSION [Concomitant]

REACTIONS (4)
  - Suspected transmission of an infectious agent via product [Unknown]
  - Drug specific antibody present [Unknown]
  - HTLV test positive [Unknown]
  - Cytomegalovirus test positive [Unknown]
